FAERS Safety Report 18111470 (Version 1)
Quarter: 2020Q3

REPORT INFORMATION
  Report Type: Spontaneous
  Country: US (occurrence: US)
  Receive Date: 20200804
  Receipt Date: 20200804
  Transmission Date: 20201103
  Serious: Yes (Other)
  Sender: FDA-Public Use
  Company Number: NVSC2020US211169

PATIENT
  Sex: Female

DRUGS (3)
  1. PREDNISOLONE ACETATE. [Suspect]
     Active Substance: PREDNISOLONE ACETATE
     Indication: PRODUCT USED FOR UNKNOWN INDICATION
     Dosage: 1 GTT, QID (1ST OCCASION) (BOTH EYES)
     Route: 047
     Dates: start: 201912
  2. PREDNISOLONE ACETATE. [Suspect]
     Active Substance: PREDNISOLONE ACETATE
     Dosage: 1 GTT, QID (2ND OCCASION)
     Route: 047
     Dates: start: 202006
  3. PREDNISOLONE ACETATE. [Suspect]
     Active Substance: PREDNISOLONE ACETATE
     Dosage: 1 GTT, QID (3RD OCCASION)
     Route: 065

REACTIONS (4)
  - Eye pain [Unknown]
  - Product quality issue [Unknown]
  - Eye irritation [Unknown]
  - Tolosa-Hunt syndrome [Unknown]
